FAERS Safety Report 4409627-4 (Version None)
Quarter: 2004Q3

REPORT INFORMATION
  Report Type: 
  Country: None (occurrence: None)
  Receive Date: 20040726
  Receipt Date: 20040712
  Transmission Date: 20050211
  Serious: Yes (Hospitalization)
  Sender: FDA-Public Use
  Company Number: F01200401911

PATIENT
  Age: 60 Year
  Sex: Male

DRUGS (2)
  1. OXALIPLATIN - SOLUTION - 92 MG [Suspect]
     Indication: RECTAL CANCER
     Dosage: 60 MG/M2 1/WEEK (CUMULATIVE DOSE : 92 MG)
     Route: 017
     Dates: start: 20040630, end: 20040630
  2. FLUOROURACIL [Suspect]
     Dosage: 225 MG/M2/DAY AS CONTINUOUS INFUSION FOR APPROMIXATELY 6 WEEKS (CUMULATIVE DOSE: 2422 MG)
     Route: 042
     Dates: start: 20040630, end: 20040706

REACTIONS (2)
  - HYPERCREATININAEMIA [None]
  - RENAL FAILURE ACUTE [None]
